FAERS Safety Report 8922213 (Version 1)
Quarter: 2012Q4

REPORT INFORMATION
  Report Type: Spontaneous
  Country: US (occurrence: None)
  Receive Date: 20121120
  Receipt Date: 20121120
  Transmission Date: 20130627
  Serious: Yes (Other)
  Sender: FDA-Public Use
  Company Number: None

PATIENT
  Sex: Male

DRUGS (1)
  1. INCRELEX [Suspect]
     Route: 058
     Dates: start: 20120821, end: 20121106

REACTIONS (5)
  - Injection site hypersensitivity [None]
  - Injection site swelling [None]
  - Injection site urticaria [None]
  - Injection site pruritus [None]
  - Ear pruritus [None]
